FAERS Safety Report 5788249-7 (Version None)
Quarter: 2008Q2

REPORT INFORMATION
  Report Type: 
  Country: None (occurrence: None)
  Receive Date: 20080623
  Receipt Date: 20080610
  Transmission Date: 20081010
  Serious: Yes (Death)
  Sender: FDA-Public Use
  Company Number: 235538J08USA

PATIENT
  Age: 53 Year
  Sex: Male
  Weight: 86.1834 kg

DRUGS (7)
  1. REBIF [Suspect]
     Indication: MULTIPLE SCLEROSIS
     Dosage: 44 MCG, 3 IN 1 WEEKS, SUBCUTANEOUS
     Route: 058
     Dates: start: 20050618, end: 20080229
  2. ANTICHOLESTEROL MEDICATION(ALL OTHER NON-THERAPEUTIC PRODUCTS) [Concomitant]
  3. ASPIRIN [Concomitant]
  4. PROVIGIL [Concomitant]
  5. METFORMIN HCL [Concomitant]
  6. STEROIDS (CORTICOSTEROIDS) [Concomitant]
  7. AMINOPYRIDINE (ALL OTHER THERAPEUTIC PRODUCTS) [Concomitant]

REACTIONS (2)
  - MYOCARDIAL INFARCTION [None]
  - WEIGHT DECREASED [None]
